FAERS Safety Report 6310214-1 (Version None)
Quarter: 2009Q3

REPORT INFORMATION
  Report Type: 
  Country: None (occurrence: None)
  Receive Date: 20090814
  Receipt Date: 20090803
  Transmission Date: 20100115
  Serious: Yes (Other)
  Sender: FDA-Public Use
  Company Number: US-WYE-H10428309

PATIENT
  Sex: Male
  Weight: 87.4 kg

DRUGS (1)
  1. XYNTHA [Suspect]
     Indication: FACTOR VIII DEFICIENCY
     Route: 042
     Dates: start: 20090719, end: 20090720

REACTIONS (2)
  - DRUG INEFFECTIVE [None]
  - PRODUCT PACKAGING QUANTITY ISSUE [None]
